FAERS Safety Report 4602867-0 (Version None)
Quarter: 2005Q1

REPORT INFORMATION
  Report Type: 
  Country: None (occurrence: None)
  Receive Date: 20050309
  Receipt Date: 20050307
  Transmission Date: 20050727
  Serious: Yes (Hospitalization)
  Sender: FDA-Public Use
  Company Number: US-GLAXOSMITHKLINE-A0548592A

PATIENT
  Sex: Female

DRUGS (4)
  1. AVANDIA [Suspect]
     Route: 048
  2. ASENDIN [Concomitant]
     Indication: DRUG USE FOR UNKNOWN INDICATION
  3. VISTARIL [Concomitant]
     Indication: DRUG USE FOR UNKNOWN INDICATION
  4. ECOTRIN [Concomitant]
     Indication: DRUG USE FOR UNKNOWN INDICATION

REACTIONS (2)
  - CARDIAC ARREST [None]
  - HEART RATE INCREASED [None]
